FAERS Safety Report 4544242-3 (Version None)
Quarter: 2004Q4

REPORT INFORMATION
  Report Type: 
  Country: None (occurrence: None)
  Receive Date: 20041230
  Receipt Date: 20041228
  Transmission Date: 20050328
  Serious: Yes (Hospitalization, Other)
  Sender: FDA-Public Use
  Company Number: NLWYE278613DEC04

PATIENT
  Age: 58 Year
  Sex: Male

DRUGS (8)
  1. RAPAMUNE [Suspect]
     Indication: IMMUNOSUPPRESSION
     Dosage: 5 MG 1X PER 1 DAY ORAL; 4 MG 1 X PER 1 DAY ORAL;  ORAL
     Route: 048
     Dates: start: 20041102, end: 20041205
  2. RAPAMUNE [Suspect]
     Indication: RENAL TRANSPLANT
     Dosage: 5 MG 1X PER 1 DAY ORAL; 4 MG 1 X PER 1 DAY ORAL;  ORAL
     Route: 048
     Dates: start: 20041102, end: 20041205
  3. RAPAMUNE [Suspect]
     Indication: IMMUNOSUPPRESSION
     Dosage: 5 MG 1X PER 1 DAY ORAL; 4 MG 1 X PER 1 DAY ORAL;  ORAL
     Route: 048
     Dates: start: 20041205, end: 20041209
  4. RAPAMUNE [Suspect]
     Indication: RENAL TRANSPLANT
     Dosage: 5 MG 1X PER 1 DAY ORAL; 4 MG 1 X PER 1 DAY ORAL;  ORAL
     Route: 048
     Dates: start: 20041205, end: 20041209
  5. RAPAMUNE [Suspect]
     Indication: IMMUNOSUPPRESSION
     Dosage: 5 MG 1X PER 1 DAY ORAL; 4 MG 1 X PER 1 DAY ORAL;  ORAL
     Route: 048
     Dates: start: 20041210
  6. RAPAMUNE [Suspect]
     Indication: RENAL TRANSPLANT
     Dosage: 5 MG 1X PER 1 DAY ORAL; 4 MG 1 X PER 1 DAY ORAL;  ORAL
     Route: 048
     Dates: start: 20041210
  7. SINTROM [Concomitant]
  8. TACROLIMUS (TACROLIMUS) [Concomitant]

REACTIONS (3)
  - POST PROCEDURAL COMPLICATION [None]
  - PULMONARY EMBOLISM [None]
  - RENAL HAEMORRHAGE [None]
